FAERS Safety Report 8154260 (Version 5)
Quarter: 2013Q1

REPORT INFORMATION
  Report Type: Spontaneous
  Country: JP (occurrence: JP)
  Receive Date: 20110923
  Receipt Date: 20130311
  Transmission Date: 20140127
  Serious: Yes (Other)
  Sender: FDA-Public Use
  Company Number: JP-ROCHE-804209

PATIENT
  Age: 74 Year
  Sex: Female
  Weight: 45 kg

DRUGS (12)
  1. MIRCERA [Suspect]
     Indication: NEPHROGENIC ANAEMIA
     Route: 042
     Dates: start: 20110801, end: 20110801
  2. MIRCERA [Suspect]
     Route: 042
     Dates: start: 20110905, end: 20110905
  3. PALUX [Concomitant]
     Dosage: ONCE/HD DAY
     Route: 042
     Dates: start: 20110413, end: 20120605
  4. GASLON N [Concomitant]
     Route: 048
     Dates: start: 20100526, end: 20121207
  5. THYRADIN-S [Concomitant]
     Route: 048
  6. PARIET [Concomitant]
     Route: 048
     Dates: start: 20100125, end: 20121207
  7. ALFAROL [Concomitant]
     Route: 048
     Dates: start: 20120209
  8. ZYLORIC [Concomitant]
     Route: 048
     Dates: start: 20121207
  9. MICARDIS [Concomitant]
     Route: 048
     Dates: start: 20121207
  10. ATELEC [Concomitant]
     Route: 048
     Dates: start: 20121207
  11. CARDENALIN [Concomitant]
     Route: 048
     Dates: start: 20110905
  12. LASIX [Concomitant]
     Route: 048
     Dates: start: 20120619

REACTIONS (1)
  - Anaemia [Not Recovered/Not Resolved]
